FAERS Safety Report 9085194 (Version 4)
Quarter: 2014Q2

REPORT INFORMATION
  Report Type: Spontaneous
  Country: CN (occurrence: CN)
  Receive Date: 20130218
  Receipt Date: 20140512
  Transmission Date: 20141212
  Serious: Yes (Other)
  Sender: FDA-Public Use
  Company Number: PHHY2013CN011192

PATIENT
  Age: 27 Year
  Sex: Female

DRUGS (1)
  1. SEBIVO [Suspect]
     Indication: HEPATITIS B
     Dosage: 600 MG, ONE TABLET ONCE A DAY
     Route: 048
     Dates: start: 20080101, end: 20130228

REACTIONS (4)
  - Haematuria [Not Recovered/Not Resolved]
  - Blood urine [Unknown]
  - Blood creatine phosphokinase increased [Not Recovered/Not Resolved]
  - General physical health deterioration [Unknown]
